FAERS Safety Report 15934528 (Version 6)
Quarter: 2022Q2

REPORT INFORMATION
  Report Type: Report from Study
  Country: FR (occurrence: FR)
  Receive Date: 20190207
  Receipt Date: 20220517
  Transmission Date: 20220721
  Serious: Yes (Death, Congenital Anomaly, Other)
  Sender: FDA-Public Use
  Company Number: FR-VIIV HEALTHCARE LIMITED-B0561595B

PATIENT
  Age: 26 Week
  Sex: Female

DRUGS (13)
  1. EFAVIRENZ [Suspect]
     Active Substance: EFAVIRENZ
     Indication: HIV infection
     Dosage: 600 MILLIGRAM, QD, (600 MG, 1D)
     Route: 064
     Dates: start: 20050523, end: 20050908
  2. EFAVIRENZ [Suspect]
     Active Substance: EFAVIRENZ
     Indication: Foetal exposure during pregnancy
     Dosage: UNK, (MOTHER DOSE :600 MG, QD)
     Route: 064
     Dates: start: 20050523, end: 20050908
  3. NEVIRAPINE [Suspect]
     Active Substance: NEVIRAPINE
     Indication: HIV infection
     Dosage: 400 MILLIGRAM, QD, (400 MG, 1D)
     Route: 064
     Dates: start: 20050704
  4. NEVIRAPINE [Suspect]
     Active Substance: NEVIRAPINE
     Indication: Foetal exposure during pregnancy
     Dosage: UNK, ((MOTHER DOSE : 400 MG, 1D)
     Route: 064
     Dates: start: 20050704
  5. KALETRA [Suspect]
     Active Substance: LOPINAVIR\RITONAVIR
     Indication: HIV infection
     Dosage: UNK, (MOTHER DOSE :UNK)
     Route: 064
     Dates: start: 20050908
  6. COMBIVIR [Suspect]
     Active Substance: LAMIVUDINE\ZIDOVUDINE
     Indication: HIV infection
     Dosage: UNK,(MOTHER DOSE :200 MG, QD)
     Route: 064
     Dates: start: 20050908
  7. COMBIVIR [Suspect]
     Active Substance: LAMIVUDINE\ZIDOVUDINE
     Dosage: UNK,(MOTHER DOSE : Q3W)
     Route: 064
  8. EMTRIVA [Suspect]
     Active Substance: EMTRICITABINE
     Indication: HIV infection
     Dosage: UNK, (MOTHER DOSE : 200 MG, QD)
     Route: 064
     Dates: start: 20050523
  9. EMTRIVA [Suspect]
     Active Substance: EMTRICITABINE
     Dosage: UNK
     Route: 064
     Dates: start: 20050523
  10. EMTRIVA [Suspect]
     Active Substance: EMTRICITABINE
     Dosage: UNK, (MOTHER DOSE: 600 MG, QD)
     Route: 064
     Dates: start: 20050523, end: 20050908
  11. DIDANOSINE [Suspect]
     Active Substance: DIDANOSINE
     Indication: HIV infection
     Dosage: UNK,(MOTHER DOSE : UNK)
     Route: 064
     Dates: start: 20050523, end: 20050908
  12. LOPINAVIR\RITONAVIR [Suspect]
     Active Substance: LOPINAVIR\RITONAVIR
     Indication: Product used for unknown indication
     Dosage: UNK UNK, Q3W
     Route: 064
  13. LOPINAVIR\RITONAVIR [Suspect]
     Active Substance: LOPINAVIR\RITONAVIR
     Dosage: UNK (MOTHER DOSE)
     Route: 064
     Dates: start: 20050908

REACTIONS (9)
  - Spina bifida [Fatal]
  - Brain herniation [Fatal]
  - Spinocerebellar disorder [Fatal]
  - Anencephaly [Unknown]
  - Congenital hydrocephalus [Unknown]
  - Encephalocele [Unknown]
  - Neural tube defect [Unknown]
  - Meningomyelocele [Unknown]
  - Foetal exposure during pregnancy [Recovered/Resolved]
